FAERS Safety Report 6590851-X (Version None)
Quarter: 2010Q1

REPORT INFORMATION
  Report Type: 
  Country: None (occurrence: None)
  Receive Date: 20100219
  Receipt Date: 20100216
  Transmission Date: 20100710
  Serious: Yes (Hospitalization)
  Sender: FDA-Public Use
  Company Number: US-MERCK-1002USA02372

PATIENT
  Age: 88 Year
  Sex: Female

DRUGS (10)
  1. JANUVIA [Suspect]
     Indication: DIABETES MELLITUS
     Route: 048
  2. COREG [Concomitant]
     Route: 065
  3. PLAVIX [Concomitant]
     Route: 065
  4. FUROSEMIDE [Concomitant]
     Route: 065
  5. ASPIRIN [Concomitant]
     Route: 065
  6. ROBAXIN [Concomitant]
     Route: 065
  7. LISINOPRIL [Concomitant]
     Route: 048
  8. PRAVACHOL [Concomitant]
     Route: 065
  9. METHOTREXATE [Concomitant]
     Route: 065
  10. CLEOCIN [Concomitant]
     Route: 065

REACTIONS (1)
  - HYPOGLYCAEMIA [None]
